FAERS Safety Report 14497516 (Version 1)
Quarter: 2018Q1

REPORT INFORMATION
  Report Type: Spontaneous
  Country: US (occurrence: US)
  Receive Date: 20180206
  Receipt Date: 20180206
  Transmission Date: 20180509
  Serious: No
  Sender: FDA-Public Use
  Company Number: None

PATIENT
  Age: 70 Year
  Sex: Female

DRUGS (1)
  1. SUTENT [Suspect]
     Active Substance: SUNITINIB MALATE
     Indication: RENAL NEOPLASM
     Dosage: (37.5MG)     DAILY FOR 2 WEEKS ON AND 1 WEEK OFF
     Route: 048
     Dates: start: 20170920

REACTIONS (2)
  - Diarrhoea [None]
  - Blister [None]

NARRATIVE: CASE EVENT DATE: 20180205
